FAERS Safety Report 5869901-1 (Version None)
Quarter: 2008Q3

REPORT INFORMATION
  Report Type: 
  Country: None (occurrence: None)
  Receive Date: 20080904
  Receipt Date: 20080826
  Transmission Date: 20090109
  Serious: Yes (Other)
  Sender: FDA-Public Use
  Company Number: PHEH2006US10897

PATIENT
  Sex: Male
  Weight: 97.959 kg

DRUGS (25)
  1. ZOMETA [Suspect]
     Indication: METASTASES TO BONE
     Dosage: 4 MG, MONTHLY
     Dates: start: 20050101, end: 20060410
  2. LASIX [Concomitant]
     Dosage: 20 MG, UNK
  3. CELEBREX [Concomitant]
     Dosage: 200 MG, UNK
  4. ALLOPURINOL [Concomitant]
     Dosage: 300 MG, QD
     Route: 048
  5. CORTICOSTEROID NOS [Concomitant]
     Route: 008
     Dates: start: 20060201
  6. SPIRIVA [Concomitant]
     Dosage: 30 MG, UNK
  7. PROTONIX [Concomitant]
     Dosage: 40 MG, QD
  8. MUCINEX [Concomitant]
     Dosage: 200-600 MG PRN
  9. MUCINEX [Concomitant]
     Dosage: 10 MG, UNK
  10. AMBIEN [Concomitant]
     Indication: SLEEP DISORDER
     Dosage: 10 MG, UNK
     Route: 048
  11. LUNESTA [Concomitant]
     Dosage: 3 MG, UNK
  12. PERCOCET [Concomitant]
  13. FOLIC ACID [Concomitant]
  14. ASPIRIN [Concomitant]
     Dosage: 81 MG, UNK
  15. ELIGARD [Concomitant]
     Dosage: 7.5 UNK, UNK
  16. ACCUNEB [Concomitant]
  17. TRELSTAR [Concomitant]
     Dosage: 11.25 MG, Q3MO
     Route: 030
  18. MS CONTIN [Concomitant]
  19. DURAGESIC-100 [Concomitant]
     Dosage: 25 MCG
  20. ZOCOR [Concomitant]
     Dosage: 40 MG, UNK
  21. HYDROCODONE BITARTRATE [Concomitant]
     Dosage: 7.5/650 MG
  22. MULTI-VITAMINS [Concomitant]
  23. CALCIUM [Concomitant]
  24. CIALIS ^GLAXOSMITHKLINE^ [Concomitant]
     Dosage: 20 MG, UNK
  25. FLONASE [Concomitant]

REACTIONS (25)
  - ANXIETY [None]
  - ARTHRALGIA [None]
  - BACK PAIN [None]
  - BONE DENSITY DECREASED [None]
  - CHEST PAIN [None]
  - CYST [None]
  - INJURY [None]
  - JAW DISORDER [None]
  - JOINT EFFUSION [None]
  - JOINT INJURY [None]
  - METASTASES TO BONE [None]
  - MUSCULAR WEAKNESS [None]
  - MUSCULOSKELETAL PAIN [None]
  - OEDEMA PERIPHERAL [None]
  - OSTEONECROSIS [None]
  - PAIN [None]
  - PAIN IN EXTREMITY [None]
  - PROSTATIC SPECIFIC ANTIGEN INCREASED [None]
  - RADICULITIS LUMBOSACRAL [None]
  - RADIOTHERAPY [None]
  - SHOULDER OPERATION [None]
  - SPINAL COLUMN STENOSIS [None]
  - SPINAL OSTEOARTHRITIS [None]
  - TENDON DISORDER [None]
  - TOOTH INFECTION [None]
